FAERS Safety Report 9639153 (Version 1)
Quarter: 2013Q4

REPORT INFORMATION
  Report Type: Spontaneous
  Country: GB (occurrence: GB)
  Receive Date: 20131022
  Receipt Date: 20131022
  Transmission Date: 20140711
  Serious: Yes (Hospitalization)
  Sender: FDA-Public Use
  Company Number: GB-ABBVIE-13P-167-1159376-00

PATIENT
  Sex: 0

DRUGS (1)
  1. EPILIM [Suspect]
     Indication: EPILEPSY
     Route: 048

REACTIONS (1)
  - Convulsion [Unknown]
